FAERS Safety Report 6026524-1 (Version None)
Quarter: 2009Q1

REPORT INFORMATION
  Report Type: 
  Country: None (occurrence: None)
  Receive Date: 20090102
  Receipt Date: 20081223
  Transmission Date: 20090719
  Serious: Yes (Hospitalization, Other)
  Sender: FDA-Public Use
  Company Number: NL-ELI_LILLY_AND_COMPANY-NL200812002930

PATIENT
  Sex: Male
  Weight: 54 kg

DRUGS (7)
  1. CIALIS [Suspect]
     Indication: ERECTILE DYSFUNCTION
     Dosage: 20 MG, AS NEEDED
     Route: 048
     Dates: start: 20060103
  2. CIALIS [Suspect]
     Dosage: 10 MG, AS NEEDED
     Route: 048
  3. DIOVAN [Concomitant]
     Indication: HYPERTENSION
     Dosage: 80 MG, DAILY (1/D)
     Route: 065
     Dates: start: 20071102
  4. ACETYLSALICYLIC ACID SRT [Concomitant]
     Dosage: 80 MG, DAILY (1/D)
     Route: 065
     Dates: start: 20070702
  5. SIMVASTATIN [Concomitant]
     Dosage: 20 MG, DAILY (1/D)
     Route: 048
     Dates: start: 20070529
  6. ISOSORBIDEDINITRAAT A [Concomitant]
     Dosage: 5 MG, AS NEEDED
     Route: 065
     Dates: start: 20080702
  7. METOPROLOL TARTRATE [Concomitant]
     Dosage: 50 MG, DAILY (1/D)
     Route: 048

REACTIONS (3)
  - CORONARY ARTERY BYPASS [None]
  - MITRAL VALVE REPAIR [None]
  - PALPITATIONS [None]
